FAERS Safety Report 23376037 (Version 1)
Quarter: 2024Q1

REPORT INFORMATION
  Report Type: Spontaneous
  Country: GB (occurrence: GB)
  Receive Date: 20240108
  Receipt Date: 20240108
  Transmission Date: 20240409
  Serious: Yes (Other)
  Sender: FDA-Public Use
  Company Number: None

PATIENT
  Age: 88 Year
  Sex: Female
  Weight: 54.43 kg

DRUGS (2)
  1. FEXOFENADINE [Suspect]
     Active Substance: FEXOFENADINE HYDROCHLORIDE
     Indication: Pruritus
     Dates: start: 20231219, end: 20231228
  2. CETRABEN EMOLLIENT CREAM [Concomitant]
     Dosage: APPLY WHEN REQUIRED AND AS DIRECTED
     Dates: start: 20231212

REACTIONS (1)
  - Hallucination, visual [Recovered/Resolved]
